FAERS Safety Report 15165161 (Version 4)
Quarter: 2018Q4

REPORT INFORMATION
  Report Type: Report from Study
  Country: CO (occurrence: CO)
  Receive Date: 20180719
  Receipt Date: 20181112
  Transmission Date: 20190204
  Serious: Yes (Hospitalization, Other)
  Sender: FDA-Public Use
  Company Number: PHHY2018CO039100

PATIENT
  Age: 76 Year
  Sex: Female

DRUGS (6)
  1. VOTRIENT [Suspect]
     Active Substance: PAZOPANIB HYDROCHLORIDE
     Indication: METASTATIC RENAL CELL CARCINOMA
     Dosage: 1600 MG, QD
     Route: 048
     Dates: start: 201801
  2. VOTRIENT [Suspect]
     Active Substance: PAZOPANIB HYDROCHLORIDE
     Dosage: 400 MG, QD (1 TABLET QD)
     Route: 048
  3. VOTRIENT [Suspect]
     Active Substance: PAZOPANIB HYDROCHLORIDE
     Dosage: 800 MG, UNK (2 TABLETS DAILY)
     Route: 048
     Dates: end: 201808
  4. VOTRIENT [Suspect]
     Active Substance: PAZOPANIB HYDROCHLORIDE
     Dosage: 800 MG, QD
     Route: 048
     Dates: start: 201801
  5. VOTRIENT [Suspect]
     Active Substance: PAZOPANIB HYDROCHLORIDE
     Dosage: 800 MG, UNK, (2 TABLETS DAILY) (AT NIGHT)
     Route: 048
  6. VOTRIENT [Suspect]
     Active Substance: PAZOPANIB HYDROCHLORIDE
     Dosage: 800 MG, QHS (2 TABLETS DAILY)
     Route: 048
     Dates: start: 20180103

REACTIONS (14)
  - Depression [Unknown]
  - Abdominal pain upper [Unknown]
  - Pain in extremity [Unknown]
  - Gastric ulcer [Unknown]
  - Hypertensive crisis [Unknown]
  - Intestinal metaplasia [Unknown]
  - Seizure [Unknown]
  - Dizziness [Unknown]
  - Overdose [Unknown]
  - Burning sensation [Unknown]
  - Malaise [Unknown]
  - Loss of consciousness [Unknown]
  - Blood pressure increased [Unknown]
  - Headache [Not Recovered/Not Resolved]

NARRATIVE: CASE EVENT DATE: 201801
